FAERS Safety Report 19419386 (Version 1)
Quarter: 2021Q2

REPORT INFORMATION
  Report Type: Report from Study
  Country: None (occurrence: AR)
  Receive Date: 20210615
  Receipt Date: 20210615
  Transmission Date: 20210717
  Serious: Yes (Other)
  Sender: FDA-Public Use
  Company Number: AR-ABBVIE-21K-007-3794711-00

PATIENT
  Age: 28 Year
  Sex: Male

DRUGS (1)
  1. HUMIRA [Suspect]
     Active Substance: ADALIMUMAB
     Indication: CROHN^S DISEASE
     Route: 058
     Dates: start: 20191010

REACTIONS (8)
  - Arthralgia [Unknown]
  - Colonic fistula [Not Recovered/Not Resolved]
  - Gastrointestinal pain [Unknown]
  - Pain [Unknown]
  - Osteosclerosis [Not Recovered/Not Resolved]
  - Malaise [Unknown]
  - Back pain [Unknown]
  - Gastric fistula [Unknown]

NARRATIVE: CASE EVENT DATE: 202102
